FAERS Safety Report 17295767 (Version 1)
Quarter: 2020Q1

REPORT INFORMATION
  Report Type: Spontaneous
  Country: BR (occurrence: BR)
  Receive Date: 20200121
  Receipt Date: 20200121
  Transmission Date: 20200409
  Serious: Yes (Other)
  Sender: FDA-Public Use
  Company Number: BR-ABBVIE-20P-020-3236252-00

PATIENT
  Sex: Male
  Weight: 70 kg

DRUGS (1)
  1. DEPAKENE [Suspect]
     Active Substance: VALPROIC ACID
     Indication: HEAD DISCOMFORT
     Dosage: DAILY DOSE: 2 TABLET. STARTED AROUND 20 YEARS AGO OR A FEW OVER
     Route: 048

REACTIONS (9)
  - Tongue disorder [Unknown]
  - Erectile dysfunction [Unknown]
  - Hypoaesthesia [Unknown]
  - Memory impairment [Recovered/Resolved]
  - Pain in extremity [Unknown]
  - Thyroid disorder [Unknown]
  - Seizure [Recovered/Resolved]
  - Lip discolouration [Recovered/Resolved]
  - Paraesthesia [Unknown]

NARRATIVE: CASE EVENT DATE: 2018
